FAERS Safety Report 9496753 (Version 1)
Quarter: 2013Q3

REPORT INFORMATION
  Report Type: Spontaneous
  Country: US (occurrence: US)
  Receive Date: 20130904
  Receipt Date: 20130904
  Transmission Date: 20140515
  Serious: Yes (Hospitalization)
  Sender: FDA-Public Use
  Company Number: US-SANOFI-AVENTIS-2013SA087844

PATIENT
  Age: 19 Year
  Sex: 0

DRUGS (1)
  1. LANTUS [Suspect]
     Route: 065

REACTIONS (3)
  - Adverse event [Unknown]
  - Malaise [Unknown]
  - Drug dose omission [Unknown]
